FAERS Safety Report 15208645 (Version 2)
Quarter: 2018Q3

REPORT INFORMATION
  Report Type: Spontaneous
  Country: CA (occurrence: CA)
  Receive Date: 20180727
  Receipt Date: 20180801
  Transmission Date: 20181010
  Serious: Yes (Other)
  Sender: FDA-Public Use
  Company Number: CA-AMGEN-CANSP2018100909

PATIENT
  Age: 42 Year
  Sex: Male
  Weight: 85 kg

DRUGS (6)
  1. HUMIRA [Suspect]
     Active Substance: ADALIMUMAB
     Dosage: 40 MG, QWK (1 EVERY 1 WEEKS)
     Route: 058
  2. STELARA [Suspect]
     Active Substance: USTEKINUMAB
     Indication: PSORIATIC ARTHROPATHY
     Dosage: UNK
     Route: 058
  3. ACETAMINOPHEN W/OXYCODONE HYDROCHLORIDE [Concomitant]
     Active Substance: ACETAMINOPHEN\OXYCODONE HYDROCHLORIDE
     Indication: PAIN
     Dosage: UNK UNK, QD (1 EVERY ONE DAY)
     Route: 048
  4. NAPROXEN. [Concomitant]
     Active Substance: NAPROXEN
     Indication: PSORIATIC ARTHROPATHY
     Dosage: UNK
     Route: 048
  5. ENBREL [Suspect]
     Active Substance: ETANERCEPT
     Indication: PSORIATIC ARTHROPATHY
     Dosage: 20 MG, UNK
     Route: 058
  6. HUMIRA [Suspect]
     Active Substance: ADALIMUMAB
     Indication: PSORIATIC ARTHROPATHY
     Dosage: 40 MG, Q2WK (1 EVERY 2 WEEKS)
     Route: 058

REACTIONS (18)
  - Gamma-glutamyltransferase abnormal [Recovering/Resolving]
  - Gastric ulcer [Recovering/Resolving]
  - Diverticulum [Recovering/Resolving]
  - Alanine aminotransferase abnormal [Recovering/Resolving]
  - Anaemia of chronic disease [Recovering/Resolving]
  - Gastritis [Recovering/Resolving]
  - Vitamin B12 increased [Recovering/Resolving]
  - Arthritis [Recovering/Resolving]
  - Mean cell volume decreased [Recovering/Resolving]
  - Psoriasis [Recovering/Resolving]
  - Red blood cell count decreased [Recovering/Resolving]
  - Antinuclear antibody positive [Recovering/Resolving]
  - Bacteraemia [Recovering/Resolving]
  - Diverticulum intestinal [Recovering/Resolving]
  - Blood folate increased [Recovering/Resolving]
  - Intentional product misuse [Recovering/Resolving]
  - Iron deficiency anaemia [Recovering/Resolving]
  - Prothrombin time abnormal [Recovering/Resolving]
